FAERS Safety Report 19148092 (Version 2)
Quarter: 2021Q2

REPORT INFORMATION
  Report Type: Spontaneous
  Country: JP (occurrence: JP)
  Receive Date: 20210416
  Receipt Date: 20210501
  Transmission Date: 20210717
  Serious: Yes (Other)
  Sender: FDA-Public Use
  Company Number: JP-ROCHE-2810496

PATIENT
  Age: 8 Decade
  Sex: Male

DRUGS (5)
  1. 5?FU [Suspect]
     Active Substance: FLUOROURACIL
     Indication: RECTAL CANCER
     Route: 040
  2. 5?FU [Suspect]
     Active Substance: FLUOROURACIL
     Route: 041
  3. AVASTIN [Suspect]
     Active Substance: BEVACIZUMAB
     Indication: RECTAL CANCER
     Route: 041
  4. LEVOFOLINATE CALCIUM [Concomitant]
     Active Substance: LEVOLEUCOVORIN CALCIUM
     Route: 041
  5. OXALIPLATIN. [Concomitant]
     Active Substance: OXALIPLATIN
     Route: 041

REACTIONS (1)
  - Interstitial lung disease [Not Recovered/Not Resolved]

NARRATIVE: CASE EVENT DATE: 202103
